FAERS Safety Report 24000698 (Version 1)
Quarter: 2024Q2

REPORT INFORMATION
  Report Type: Spontaneous
  Country: US (occurrence: US)
  Receive Date: 20240621
  Receipt Date: 20240621
  Transmission Date: 20240716
  Serious: No
  Sender: FDA-Public Use
  Company Number: US-PFIZER INC-202400197131

PATIENT
  Age: 14 Year
  Sex: Male

DRUGS (1)
  1. R-GENE [Suspect]
     Active Substance: ARGININE HYDROCHLORIDE
     Dosage: UNK
     Dates: start: 20240619, end: 20240619

REACTIONS (2)
  - Nausea [Recovered/Resolved]
  - Vomiting [Recovered/Resolved]

NARRATIVE: CASE EVENT DATE: 20240619
